FAERS Safety Report 26159238 (Version 1)
Quarter: 2025Q4

REPORT INFORMATION
  Report Type: Report from Study
  Country: GB (occurrence: GB)
  Receive Date: 20251216
  Receipt Date: 20251216
  Transmission Date: 20260117
  Serious: Yes (Hospitalization, Other)
  Sender: ALEXION PHARMACEUTICALS
  Company Number: GB-AstraZeneca-CH-00968563A

PATIENT
  Age: 35 Year
  Sex: Female

DRUGS (1)
  1. RAVULIZUMAB [Suspect]
     Active Substance: RAVULIZUMAB
     Indication: Paroxysmal nocturnal haemoglobinuria
     Dosage: 3300 MILLIGRAM, Q8W

REACTIONS (7)
  - Campylobacter infection [Recovered/Resolved]
  - Rheumatoid arthritis [Unknown]
  - Fatigue [Unknown]
  - Chest pain [Unknown]
  - Chromaturia [Unknown]
  - Viral upper respiratory tract infection [Unknown]
  - Dyspnoea [Unknown]
